FAERS Safety Report 20093869 (Version 1)
Quarter: 2021Q4

REPORT INFORMATION
  Report Type: Spontaneous
  Country: FR (occurrence: FR)
  Receive Date: 20211121
  Receipt Date: 20211121
  Transmission Date: 20220303
  Serious: Yes (Hospitalization)
  Sender: FDA-Public Use
  Company Number: FR-ABBVIE-21K-056-4166176-00

PATIENT
  Age: 24 Year
  Sex: Male
  Weight: 63 kg

DRUGS (5)
  1. DEPAKOTE [Suspect]
     Active Substance: DIVALPROEX SODIUM
     Indication: Product used for unknown indication
     Route: 048
  2. DIAZEPAM [Suspect]
     Active Substance: DIAZEPAM
     Indication: Product used for unknown indication
     Route: 048
     Dates: end: 20191120
  3. TROPATEPINE HYDROCHLORIDE [Suspect]
     Active Substance: TROPATEPINE HYDROCHLORIDE
     Indication: Product used for unknown indication
     Route: 048
     Dates: end: 20191120
  4. OLANZAPINE [Suspect]
     Active Substance: OLANZAPINE
     Indication: Childhood psychosis
     Route: 048
     Dates: end: 20191120
  5. AMISULPRIDE [Suspect]
     Active Substance: AMISULPRIDE
     Indication: Childhood psychosis
     Route: 048
     Dates: end: 20191120

REACTIONS (1)
  - Psychomotor skills impaired [Recovered/Resolved]

NARRATIVE: CASE EVENT DATE: 20191119
